FAERS Safety Report 8916237 (Version 1)
Quarter: 2012Q4

REPORT INFORMATION
  Report Type: 
  Country: JP (occurrence: JP)
  Receive Date: 20121120
  Receipt Date: 20121120
  Transmission Date: 20130627
  Serious: Yes (Other)
  Sender: FDA-Public Use
  Company Number: JP-GLAXOSMITHKLINE-B0845764A

PATIENT
  Age: 75 None
  Sex: Female

DRUGS (12)
  1. PHOSBLOCK [Concomitant]
     Route: 048
  2. GASMOTIN [Concomitant]
     Route: 048
  3. FRANDOL [Concomitant]
     Route: 062
  4. AMLODIN [Concomitant]
     Route: 048
  5. PANTOSIN [Concomitant]
     Route: 065
  6. ZOVIRAX [Suspect]
     Indication: HERPES ZOSTER
     Dosage: 1IUAX Three times per day
     Route: 048
     Dates: start: 20121109, end: 20121112
  7. MEVALOTIN [Concomitant]
     Route: 048
  8. DEPAS [Concomitant]
     Route: 048
  9. ACECOL [Concomitant]
     Route: 048
  10. MUCOSTA [Concomitant]
     Route: 065
  11. REGPARA [Concomitant]
     Route: 048
  12. NEXIUM [Concomitant]
     Route: 048

REACTIONS (5)
  - Altered state of consciousness [Recovering/Resolving]
  - Encephalopathy [Recovering/Resolving]
  - Tremor [Recovering/Resolving]
  - Speech disorder [Unknown]
  - Asthenia [Unknown]
